FAERS Safety Report 8159112-1 (Version None)
Quarter: 2012Q1

REPORT INFORMATION
  Report Type: 
  Country: None (occurrence: None)
  Receive Date: 20120223
  Receipt Date: 20120213
  Transmission Date: 20120608
  Serious: Yes (Hospitalization)
  Sender: FDA-Public Use
  Company Number: US-ELI_LILLY_AND_COMPANY-US201202004225

PATIENT
  Sex: Female
  Weight: 77.098 kg

DRUGS (4)
  1. LYRICA [Concomitant]
     Dosage: 75 MG, BID
  2. CYMBALTA [Suspect]
     Dosage: 60 MG, BID
     Dates: end: 20111201
  3. METOPROLOL                         /00376902/ [Concomitant]
     Indication: HYPERTENSION
     Dosage: 100 MG, QD
  4. LYRICA [Concomitant]
     Indication: FIBROMYALGIA
     Dosage: UNK

REACTIONS (1)
  - TRANSIENT ISCHAEMIC ATTACK [None]
